FAERS Safety Report 7178129-7 (Version None)
Quarter: 2010Q4

REPORT INFORMATION
  Report Type: 
  Country: None (occurrence: None)
  Receive Date: 20101220
  Receipt Date: 20101214
  Transmission Date: 20110411
  Serious: Yes (Other)
  Sender: FDA-Public Use
  Company Number: A0900441A

PATIENT
  Sex: Female

DRUGS (2)
  1. LAMICTAL [Suspect]
  2. BIRTH CONTROL PILLS [Suspect]
     Indication: CONTRACEPTION

REACTIONS (3)
  - DRUG EXPOSURE DURING PREGNANCY [None]
  - DRUG INTERACTION [None]
  - UNINTENDED PREGNANCY [None]
